FAERS Safety Report 5069200-4 (Version None)
Quarter: 2006Q3

REPORT INFORMATION
  Report Type: 
  Country: None (occurrence: None)
  Receive Date: 20060803
  Receipt Date: 20060711
  Transmission Date: 20061208
  Serious: Yes (Other)
  Sender: FDA-Public Use
  Company Number: ES-JNJFOC-20060306934

PATIENT
  Age: 15 Year
  Sex: Male

DRUGS (10)
  1. REMICADE [Suspect]
     Route: 042
  2. REMICADE [Suspect]
     Route: 042
  3. REMICADE [Suspect]
     Route: 042
  4. REMICADE [Suspect]
     Indication: CROHN'S DISEASE
     Dosage: 4 INFUSIONS
     Route: 042
  5. URBASON [Concomitant]
     Route: 042
  6. URBASON [Concomitant]
     Indication: PREMEDICATION
     Route: 042
  7. IMUREL [Concomitant]
  8. 5-ASA [Concomitant]
  9. ACTOCORTINA [Concomitant]
     Indication: PREMEDICATION
     Route: 042
  10. POLARAMINE [Concomitant]
     Indication: PREMEDICATION
     Route: 042

REACTIONS (5)
  - DYSPNOEA [None]
  - FLUSHING [None]
  - INFUSION RELATED REACTION [None]
  - RASH [None]
  - URTICARIA [None]
